FAERS Safety Report 9220937 (Version 1)
Quarter: 2013Q2

REPORT INFORMATION
  Report Type: Report from Study
  Country: BR (occurrence: BR)
  Receive Date: 20130409
  Receipt Date: 20130409
  Transmission Date: 20140414
  Serious: Yes (Hospitalization, Other)
  Sender: FDA-Public Use
  Company Number: BR-ABBOTT-13P-020-1043332-00

PATIENT
  Sex: Male
  Weight: 55 kg

DRUGS (3)
  1. HUMIRA [Suspect]
     Indication: ANKYLOSING SPONDYLITIS
     Route: 058
     Dates: start: 20120816, end: 20130118
  2. COMPLEX B VITAMIN + IRON [Concomitant]
     Indication: VITAMIN SUPPLEMENTATION
     Dosage: FORM OF ADMINISTRATION:  LIQUID / DOSE:  1 SPOON
     Route: 048
  3. VITAMIN C [Concomitant]
     Indication: VITAMIN SUPPLEMENTATION
     Dosage: FORM OF ADMINISTRATION:  LIQUID
     Route: 048

REACTIONS (4)
  - Inflammation [Recovering/Resolving]
  - Perihepatic abscess [Unknown]
  - Perihepatic abscess [Recovering/Resolving]
  - Immunodeficiency [Unknown]
